FAERS Safety Report 7572444-0 (Version None)
Quarter: 2011Q2

REPORT INFORMATION
  Report Type: 
  Country: None (occurrence: None)
  Receive Date: 20110624
  Receipt Date: 20110606
  Transmission Date: 20111010
  Serious: Yes (Life-Threatening, Hospitalization)
  Sender: FDA-Public Use
  Company Number: IN-ASTRAZENECA-2011SE34405

PATIENT
  Age: 25 Year
  Sex: Female

DRUGS (4)
  1. METOPROLOL TARTRATE [Suspect]
     Route: 048
  2. VERPAMIL HCL [Suspect]
     Route: 048
  3. CLONAZEPAM [Concomitant]
     Indication: DEPRESSION
  4. SERTALIN [Concomitant]
     Indication: DEPRESSION

REACTIONS (6)
  - SUICIDE ATTEMPT [None]
  - WRONG DRUG ADMINISTERED [None]
  - BRADYCARDIA [None]
  - ATRIOVENTRICULAR BLOCK FIRST DEGREE [None]
  - MULTIPLE DRUG OVERDOSE [None]
  - BLINDNESS TRANSIENT [None]
